FAERS Safety Report 8220486-4 (Version None)
Quarter: 2012Q1

REPORT INFORMATION
  Report Type: 
  Country: None (occurrence: None)
  Receive Date: 20120320
  Receipt Date: 20120309
  Transmission Date: 20120608
  Serious: Yes (Other)
  Sender: FDA-Public Use
  Company Number: US-BAYER-2011-050886

PATIENT
  Age: 21 Year
  Sex: Female
  Weight: 99.773 kg

DRUGS (2)
  1. YASMIN [Suspect]
     Indication: CONTRACEPTION
     Dosage: UNK
     Dates: start: 20050101, end: 20051101
  2. NAPROXEN (ALEVE) [Concomitant]

REACTIONS (2)
  - PAIN [None]
  - CHOLECYSTITIS CHRONIC [None]
